FAERS Safety Report 8345187-3 (Version None)
Quarter: 2012Q2

REPORT INFORMATION
  Report Type: 
  Country: None (occurrence: None)
  Receive Date: 20120508
  Receipt Date: 20120419
  Transmission Date: 20120825
  Serious: Yes (Other)
  Sender: FDA-Public Use
  Company Number: NL-ACTELION-A-CH2012-64483

PATIENT
  Age: 55 Year
  Sex: Male

DRUGS (5)
  1. TRACLEER [Suspect]
     Indication: DIGITAL ULCER
     Dosage: 62.5 MG, BID
     Route: 048
     Dates: start: 20120404, end: 20120412
  2. ACETYLSALICYLIC ACID SRT [Concomitant]
  3. SIMVASTATIN [Concomitant]
     Dosage: UNK
  4. OMEPRAZOLE [Concomitant]
  5. OXYCONTIN [Concomitant]

REACTIONS (1)
  - VISUAL ACUITY REDUCED [None]
